FAERS Safety Report 16718145 (Version 1)
Quarter: 2019Q3

REPORT INFORMATION
  Report Type: Spontaneous
  Country: FR (occurrence: FR)
  Receive Date: 20190819
  Receipt Date: 20190819
  Transmission Date: 20191005
  Serious: Yes (Other)
  Sender: FDA-Public Use
  Company Number: FR-009507513-1908FRA006044

PATIENT
  Age: 56 Year
  Sex: Male
  Weight: 120 kg

DRUGS (1)
  1. JANUMET [Suspect]
     Active Substance: METFORMIN HYDROCHLORIDE\SITAGLIPTIN PHOSPHATE
     Indication: TYPE 2 DIABETES MELLITUS
     Dosage: 2 TABLETS/DAY
     Route: 048
     Dates: start: 20190527, end: 20190527

REACTIONS (5)
  - Abdominal pain upper [Recovering/Resolving]
  - Chest pain [Recovering/Resolving]
  - Pyrexia [Recovering/Resolving]
  - Cholelithiasis [Recovering/Resolving]
  - Cholecystitis [Recovering/Resolving]

NARRATIVE: CASE EVENT DATE: 20190527
